FAERS Safety Report 12270244 (Version 4)
Quarter: 2016Q2

REPORT INFORMATION
  Report Type: Spontaneous
  Country: US (occurrence: US)
  Receive Date: 20160415
  Receipt Date: 20160530
  Transmission Date: 20160815
  Serious: Yes (Hospitalization, Other)
  Sender: FDA-Public Use
  Company Number: US-009507513-1604USA007206

PATIENT
  Age: 53 Year
  Sex: Male
  Weight: 72.56 kg

DRUGS (1)
  1. KEYTRUDA [Suspect]
     Active Substance: PEMBROLIZUMAB
     Indication: LUNG CANCER METASTATIC
     Dosage: 2 MG/KG, Q3W/TOTAL DAILY DOSE ALSO REPORTED AS 144 MG, UNK
     Route: 042
     Dates: start: 20160302, end: 20160314

REACTIONS (1)
  - Acute hepatitis B [Recovering/Resolving]

NARRATIVE: CASE EVENT DATE: 20160314
